FAERS Safety Report 9742017 (Version 1)
Quarter: 2013Q4

REPORT INFORMATION
  Report Type: Spontaneous
  Country: US (occurrence: US)
  Receive Date: 20131210
  Receipt Date: 20131210
  Transmission Date: 20140711
  Serious: No
  Sender: FDA-Public Use
  Company Number: US-PFIZER INC-2013351143

PATIENT
  Age: 74 Year
  Sex: Female
  Weight: 86.17 kg

DRUGS (7)
  1. GABAPENTIN [Suspect]
     Indication: PAIN
     Dosage: UNK
     Dates: start: 2011
  2. TRAMADOL HCL [Suspect]
     Indication: PAIN
     Dosage: 50 MG, AS NEEDED
     Dates: start: 2011
  3. AMLODIPINE [Concomitant]
     Indication: HYPERTENSION
     Dosage: 10 MG, UNK
  4. POTASSIUM [Concomitant]
     Dosage: 10 MG, UNK
  5. CALCIUM [Concomitant]
     Dosage: UNK
  6. VITAMIN D [Concomitant]
     Dosage: UNK
  7. BABY ASPIRIN [Concomitant]
     Dosage: 81 MG, ONCE A DAY

REACTIONS (1)
  - Drug ineffective [Unknown]
